FAERS Safety Report 7227976-1 (Version None)
Quarter: 2011Q1

REPORT INFORMATION
  Report Type: 
  Country: None (occurrence: None)
  Receive Date: 20110111
  Receipt Date: 20110111
  Transmission Date: 20110831
  Serious: Yes (Life-Threatening, Disabling)
  Sender: FDA-Public Use
  Company Number: None

PATIENT
  Sex: Female
  Weight: 45.3597 kg

DRUGS (2)
  1. HUMIRA [Suspect]
     Indication: RHEUMATOID ARTHRITIS
     Dosage: ADULT DOSAGE INCREASE @ 1 TIME
     Dates: start: 20101001
  2. ENBREL [Suspect]
     Indication: RHEUMATOID ARTHRITIS
     Dosage: QUICKCLICK 3 TIMES ON 1G EVERY TWO WKS
     Dates: start: 20100301, end: 20100401

REACTIONS (9)
  - EYE INFLAMMATION [None]
  - INFLUENZA [None]
  - MIGRAINE [None]
  - CONDITION AGGRAVATED [None]
  - INFLAMMATION [None]
  - CORONARY ARTERY OCCLUSION [None]
  - RHEUMATOID ARTHRITIS [None]
  - MYOCARDIAL INFARCTION [None]
  - RESTLESS LEGS SYNDROME [None]
